FAERS Safety Report 6192545-1 (Version None)
Quarter: 2009Q2

REPORT INFORMATION
  Report Type: 
  Country: None (occurrence: None)
  Receive Date: 20090518
  Receipt Date: 20070507
  Transmission Date: 20091009
  Serious: Yes (Hospitalization)
  Sender: FDA-Public Use
  Company Number: US-ASTRAZENECA-2006UW27817

PATIENT
  Age: 222 Month
  Sex: Female
  Weight: 73.7 kg

DRUGS (19)
  1. SEROQUEL [Suspect]
     Indication: SCHIZOPHRENIA
     Dosage: 25-500MG
     Route: 048
     Dates: start: 20041007
  2. ABILIFY [Concomitant]
     Indication: PSYCHOTIC DISORDER
     Route: 065
     Dates: start: 20050101
  3. ABILIFY [Concomitant]
     Indication: MOOD SWINGS
     Route: 065
     Dates: start: 20050101
  4. ABILIFY [Concomitant]
     Dosage: 5-10 MG
     Route: 048
  5. ABILIFY [Concomitant]
     Dosage: 5-10 MG
     Route: 048
  6. GEODON [Concomitant]
     Route: 065
     Dates: start: 20050101
  7. LANTUS U 10  INSULIN [Concomitant]
     Dosage: 15 UNITS,AT BED TIME
     Route: 058
  8. HYDROCODONE BITARTRATE + ACETAMINOPHEN [Concomitant]
     Dosage: 5MG/500MG
     Route: 048
  9. DEPAKOTE [Concomitant]
     Indication: MOOD SWINGS
     Dosage: 500-2000 MG
     Route: 048
  10. PROCHLORPERAZINE [Concomitant]
     Route: 048
  11. LEVOTHYROXINE SODIUM [Concomitant]
     Dosage: 0.025-0.125  MCG QD
     Route: 048
  12. GLUCAGON [Concomitant]
     Dosage: 1MG, DISPENSED
     Route: 065
  13. DOXYCYCLINE HYCLATE [Concomitant]
     Route: 048
  14. PROZAC [Concomitant]
     Indication: DEPRESSION
     Dosage: 10-40MG
     Route: 048
  15. PROZAC [Concomitant]
     Indication: SOCIAL PHOBIA
     Dosage: 10-40MG
     Route: 048
  16. PROZAC [Concomitant]
     Indication: DYSPHORIA
     Dosage: 10-40MG
     Route: 048
  17. NOVOLIN INSULIN REG U -100 HUMAN [Concomitant]
     Route: 065
  18. NOVOLOG [Concomitant]
     Route: 065
  19. ORTHO TRI-CYCLEN [Concomitant]
     Route: 065

REACTIONS (8)
  - CONTUSION [None]
  - DIABETES MELLITUS [None]
  - DIABETIC KETOACIDOSIS [None]
  - DIZZINESS [None]
  - LACRIMATION INCREASED [None]
  - LEUKOPENIA [None]
  - RHINORRHOEA [None]
  - TYPE 1 DIABETES MELLITUS [None]
